FAERS Safety Report 17583541 (Version 1)
Quarter: 2020Q1

REPORT INFORMATION
  Report Type: Spontaneous
  Country: US (occurrence: US)
  Receive Date: 20200326
  Receipt Date: 20200326
  Transmission Date: 20200409
  Serious: Yes (Other)
  Sender: FDA-Public Use
  Company Number: NVSC2020US082640

PATIENT
  Sex: Male

DRUGS (1)
  1. BEOVU [Suspect]
     Active Substance: BROLUCIZUMAB-DBLL
     Indication: AGE-RELATED MACULAR DEGENERATION
     Dosage: 6 MG/KG, QMO (VAIL)
     Route: 047
     Dates: start: 20200203

REACTIONS (2)
  - Vitreal cells [Unknown]
  - Vitritis [Unknown]

NARRATIVE: CASE EVENT DATE: 20200302
